FAERS Safety Report 4383415-X (Version None)
Quarter: 2004Q2

REPORT INFORMATION
  Report Type: 
  Country: None (occurrence: None)
  Receive Date: 20040618
  Receipt Date: 20040607
  Transmission Date: 20050107
  Serious: Yes (Hospitalization, Other)
  Sender: FDA-Public Use
  Company Number: 200411848GDS

PATIENT
  Age: 44 Year
  Sex: Male
  Weight: 72 kg

DRUGS (2)
  1. LEVITRA [Suspect]
     Indication: ERECTILE DYSFUNCTION
     Dosage: 10  MG, TOTAL DAILY, ORAL
     Route: 048
     Dates: start: 20040517
  2. ANTABUSE [Concomitant]

REACTIONS (4)
  - GASTROINTESTINAL HAEMORRHAGE [None]
  - MELAENA [None]
  - NASOPHARYNGITIS [None]
  - OESOPHAGEAL VARICES HAEMORRHAGE [None]
